FAERS Safety Report 5802845-X (Version None)
Quarter: 2008Q3

REPORT INFORMATION
  Report Type: 
  Country: None (occurrence: None)
  Receive Date: 20080708
  Receipt Date: 20080627
  Transmission Date: 20090109
  Serious: Yes (Hospitalization)
  Sender: FDA-Public Use
  Company Number: FR-NOVOPROD-277051

PATIENT
  Age: 59 Year
  Sex: Male

DRUGS (12)
  1. LEVEMIR [Suspect]
     Indication: DIABETES MELLITUS
     Dosage: 10 IU, QD
     Route: 058
     Dates: start: 20071215, end: 20080131
  2. LEVEMIR [Suspect]
     Dosage: 14 IU, QD
     Route: 058
     Dates: start: 20080201, end: 20080226
  3. LEVEMIR [Suspect]
     Dosage: 18 IU, QD
     Route: 058
     Dates: start: 20080227, end: 20080304
  4. LEVEMIR [Suspect]
     Dosage: 22 IU, QD
     Route: 058
     Dates: start: 20080305, end: 20080327
  5. METFORMIN HCL [Concomitant]
  6. ALLOPURINOL [Concomitant]
  7. CORTANCYL [Concomitant]
  8. FRACTAL [Concomitant]
  9. FUROSEMIDE [Concomitant]
  10. AMARYL [Concomitant]
  11. APIDRA [Concomitant]
     Dates: start: 20080101
  12. ARAVA [Concomitant]
     Dates: start: 20080311, end: 20080331

REACTIONS (2)
  - ARTHRALGIA [None]
  - OEDEMA PERIPHERAL [None]
